FAERS Safety Report 18087445 (Version 2)
Quarter: 2020Q3

REPORT INFORMATION
  Report Type: Spontaneous
  Country: CZ (occurrence: CZ)
  Receive Date: 20200729
  Receipt Date: 20200811
  Transmission Date: 20201103
  Serious: Yes (Other)
  Sender: FDA-Public Use
  Company Number: CZ-VERTEX PHARMACEUTICALS-2020-014454

PATIENT
  Age: 43 Year
  Sex: Female

DRUGS (12)
  1. KALYDECO [Suspect]
     Active Substance: IVACAFTOR
     Indication: CYSTIC FIBROSIS
     Dosage: 150 MG PM
     Route: 048
     Dates: start: 20200427
  2. NACL [Concomitant]
     Active Substance: SODIUM CHLORIDE
     Dosage: 2X4 ML
  3. VENTOLIN [Concomitant]
     Active Substance: ALBUTEROL SULFATE
  4. ACC LONG [Concomitant]
     Active Substance: ACETYLCYSTEINE
     Dosage: 1X600 MG
     Route: 048
  5. SYMKEVI [Suspect]
     Active Substance: IVACAFTOR\TEZACAFTOR
     Indication: CYSTIC FIBROSIS
     Dosage: 100MG TEZACAFTOR/150MG IVACAFTOR AM
     Route: 048
     Dates: start: 20200427
  6. KREON 25000 [Concomitant]
     Active Substance: PANCRELIPASE
     Dosage: 1 CAPSULE WITH MEAL
  7. SYMBICORT [Concomitant]
     Active Substance: BUDESONIDE\FORMOTEROL FUMARATE DIHYDRATE
     Dosage: 200/6 UG 2X2
  8. COLOMYCIN [COLISTIN SULFATE] [Concomitant]
     Active Substance: COLISTIN SULFATE
     Dosage: 2X2 MIU
  9. BRAMITOB [Concomitant]
     Active Substance: TOBRAMYCIN
     Dosage: 2X1
  10. VIGANTOL [COLECALCIFEROL] [Concomitant]
     Active Substance: CHOLECALCIFEROL
     Dosage: 1X3 GTTS
     Route: 048
  11. LOSEPRAZOL [Concomitant]
     Active Substance: OMEPRAZOLE
     Dosage: 1X1 TBL
     Route: 048
  12. PULMOZYME [Concomitant]
     Active Substance: DORNASE ALFA
     Dosage: 1X1

REACTIONS (2)
  - Exposure during pregnancy [Unknown]
  - Abortion spontaneous [Unknown]

NARRATIVE: CASE EVENT DATE: 20200620
